FAERS Safety Report 10408375 (Version 1)
Quarter: 2014Q3

REPORT INFORMATION
  Report Type: Spontaneous
  Country: US (occurrence: US)
  Receive Date: 20140826
  Receipt Date: 20140826
  Transmission Date: 20150326
  Serious: Yes (Hospitalization, Other)
  Sender: FDA-Public Use
  Company Number: US-ACCORD-025470

PATIENT
  Age: 73 Year
  Sex: Female
  Weight: 70 kg

DRUGS (11)
  1. FEMARA [Suspect]
     Active Substance: LETROZOLE
     Indication: OESTROGEN RECEPTOR POSITIVE BREAST CANCER
     Dates: start: 2010
  2. METOPROLOL [Concomitant]
     Active Substance: METOPROLOL
     Indication: CARDIAC DISORDER
     Dosage: DOSE UNIT: 50 MG.?DRUG WAS ONGOING.
     Route: 048
  3. HYDROCHLOROTHIAZIDE/LISINOPRIL [Concomitant]
     Indication: CARDIAC DISORDER
     Dosage: DOSE UNIT: 20-12.5 MG. DRUG WAS ONGOING
     Route: 048
  4. PLAVIX [Concomitant]
     Active Substance: CLOPIDOGREL BISULFATE
     Indication: CARDIAC DISORDER
     Dosage: DOSE UNIT: 75 MG.?DRUG WAS ONGOING.
     Route: 048
  5. LIBRAX [Concomitant]
     Active Substance: CHLORDIAZEPOXIDE HYDROCHLORIDE\CLIDINIUM BROMIDE
     Indication: GASTRIC DISORDER
     Dosage: DRUG WAS ONGOING.
     Route: 048
  6. LETROZOLE ACCORD [Suspect]
     Active Substance: LETROZOLE
     Indication: OESTROGEN RECEPTOR POSITIVE BREAST CANCER
     Dosage: DOSE UNIT: 2.5 MG DURATION: 4.5 YEARS
     Route: 048
  7. ATORVASTATIN [Concomitant]
     Active Substance: ATORVASTATIN
     Indication: BLOOD CHOLESTEROL INCREASED
     Dosage: DOSE UNIT: 40 MG.?DRUG WAS ONGOING.
  8. LETROZOLE. [Suspect]
     Active Substance: LETROZOLE
     Indication: OESTROGEN RECEPTOR POSITIVE BREAST CANCER
     Dosage: GENERIC LETROZOLE
  9. ACETYLSALICYLIC ACID [Concomitant]
     Active Substance: ASPIRIN
     Indication: CARDIAC DISORDER
     Dosage: DOSE UNIT: 325 MG.?DRUG WAS ONGOING
     Route: 048
  10. HUMALOG [Suspect]
     Active Substance: INSULIN LISPRO
     Indication: DIABETES MELLITUS
     Dosage: DRUG WAS ONGOING
     Route: 058
     Dates: start: 201403
  11. LANTUS [Suspect]
     Active Substance: INSULIN GLARGINE
     Indication: DIABETES MELLITUS
     Dosage: DRUG WAS ONGOING.
     Route: 058
     Dates: start: 201403

REACTIONS (4)
  - Blood testosterone increased [Unknown]
  - Diabetes mellitus [Not Recovered/Not Resolved]
  - Myocardial infarction [Unknown]
  - Alopecia [Not Recovered/Not Resolved]

NARRATIVE: CASE EVENT DATE: 2014
